FAERS Safety Report 22111867 (Version 3)
Quarter: 2023Q2

REPORT INFORMATION
  Report Type: Report from Study
  Country: GB (occurrence: GB)
  Receive Date: 20230318
  Receipt Date: 20230519
  Transmission Date: 20230722
  Serious: Yes (Hospitalization)
  Sender: FDA-Public Use
  Company Number: GB-ROCHE-3050196

PATIENT
  Age: 68 Year
  Sex: Female
  Weight: 65.8 kg

DRUGS (9)
  1. CARBOPLATIN [Suspect]
     Active Substance: CARBOPLATIN
     Indication: Lung cancer metastatic
     Route: 065
     Dates: start: 20220106
  2. PACLITAXEL [Suspect]
     Active Substance: PACLITAXEL
     Indication: Lung cancer metastatic
     Route: 065
     Dates: start: 20220106
  3. ATEZOLIZUMAB [Suspect]
     Active Substance: ATEZOLIZUMAB
     Indication: Lung cancer metastatic
     Dosage: DOSE LAST STUDY DRUG ADMIN PRIOR AE/SAE WAS 1200 MG AND START DATE OF MOST RECENT DOSE OF STUDY DRUG
     Route: 041
     Dates: start: 20220106
  4. BEVACIZUMAB [Suspect]
     Active Substance: BEVACIZUMAB
     Indication: Lung cancer metastatic
     Route: 065
     Dates: start: 20220106
  5. AKYNZEO [Concomitant]
     Indication: Product used for unknown indication
     Route: 065
     Dates: start: 20220106, end: 20220106
  6. DACOMITINIB [Concomitant]
     Active Substance: DACOMITINIB
     Indication: Neoplasm malignant
  7. OSIMERTINIB [Concomitant]
     Active Substance: OSIMERTINIB
     Indication: Neoplasm malignant
  8. ATEZOLIZUMAB [Concomitant]
     Active Substance: ATEZOLIZUMAB
     Indication: Product used for unknown indication
     Route: 065
  9. BETNOVATE [Concomitant]
     Active Substance: BETAMETHASONE
     Indication: Product used for unknown indication
     Dosage: 0.1%
     Route: 065
     Dates: start: 20220126, end: 20220205

REACTIONS (2)
  - Neutropenic sepsis [Recovered/Resolved]
  - Rash [Recovered/Resolved]

NARRATIVE: CASE EVENT DATE: 20220111
